FAERS Safety Report 5371501-7 (Version None)
Quarter: 2007Q2

REPORT INFORMATION
  Report Type: 
  Country: None (occurrence: None)
  Receive Date: 20070615
  Receipt Date: 20070321
  Transmission Date: 20071010
  Serious: Yes (Other)
  Sender: FDA-Public Use
  Company Number: 200711409US

PATIENT
  Age: 51 Year
  Sex: Male

DRUGS (8)
  1. LANTUS [Suspect]
     Dosage: 30 U QD INJ
  2. LANTUS [Suspect]
     Dosage: 30 U QD INJ
     Dates: start: 20070201
  3. LANTUS [Suspect]
     Dosage: 30 UG QD INJ
     Dates: start: 20061207, end: 20070201
  4. ATENOLOL [Concomitant]
  5. AVANDIA [Concomitant]
  6. PLAVIX [Concomitant]
  7. DEPAKOTE [Concomitant]
  8. ATORVASTATIN CALCIUM (LIPITOR) [Concomitant]

REACTIONS (2)
  - DRUG INEFFECTIVE [None]
  - HYPERGLYCAEMIA [None]
